FAERS Safety Report 9185121 (Version 1)
Quarter: 2012Q4

REPORT INFORMATION
  Report Type: 
  Country: IT (occurrence: IT)
  Receive Date: 20121101
  Receipt Date: 20121101
  Transmission Date: 20130627
  Serious: Yes (Hospitalization)
  Sender: FDA-Public Use
  Company Number: IT-ROCHE-1106331

PATIENT
  Age: 42 None
  Sex: Female

DRUGS (3)
  1. HERCEPTIN [Suspect]
     Indication: CHEMOTHERAPY
     Dosage: form: powder for infusional solution 150 mg
     Route: 042
     Dates: start: 20120117, end: 20120411
  2. LOSARTAN/HCTZ [Concomitant]
  3. ATENOLOL [Concomitant]
     Route: 065

REACTIONS (3)
  - Chest pain [Unknown]
  - Pyrexia [Unknown]
  - Retching [Unknown]
